FAERS Safety Report 24242211 (Version 1)
Quarter: 2024Q3

REPORT INFORMATION
  Report Type: Spontaneous
  Country: US (occurrence: None)
  Receive Date: 20240822
  Receipt Date: 20240822
  Transmission Date: 20241016
  Serious: Yes (Other)
  Sender: Public
  Company Number: None

PATIENT
  Sex: Female

DRUGS (5)
  1. HUMIRA [Suspect]
     Active Substance: ADALIMUMAB
     Indication: Rheumatoid arthritis
     Dates: end: 20200205
  2. ESTRING [Concomitant]
  3. HUMIRA PEN INJ [Concomitant]
  4. NAPROXEN [Concomitant]
  5. VITAMIN D CAP [Concomitant]

REACTIONS (1)
  - Surgery [None]
